FAERS Safety Report 24895013 (Version 1)
Quarter: 2025Q1

REPORT INFORMATION
  Report Type: Spontaneous
  Country: CA (occurrence: CA)
  Receive Date: 20250128
  Receipt Date: 20250128
  Transmission Date: 20250409
  Serious: Yes (Other)
  Sender: TEVA
  Company Number: CA-TEVA-VS-3290796

PATIENT

DRUGS (1)
  1. LETROZOLE [Suspect]
     Active Substance: LETROZOLE
     Indication: Ovarian cancer
     Route: 065

REACTIONS (3)
  - Off label use [Unknown]
  - Ovarian cancer [Unknown]
  - Malignant neoplasm progression [Unknown]
